FAERS Safety Report 20177724 (Version 1)
Quarter: 2021Q4

REPORT INFORMATION
  Report Type: Spontaneous
  Country: US (occurrence: US)
  Receive Date: 20211213
  Receipt Date: 20211213
  Transmission Date: 20220303
  Serious: No
  Sender: FDA-Public Use
  Company Number: US-SANOFI-00888223

PATIENT
  Age: 76 Year
  Sex: Female

DRUGS (1)
  1. MULTAQ [Suspect]
     Active Substance: DRONEDARONE
     Indication: Atrial fibrillation
     Dosage: 400 MG, QD
     Dates: start: 202103

REACTIONS (8)
  - Psoriasis [Unknown]
  - Skin burning sensation [Unknown]
  - Skin exfoliation [Unknown]
  - Somnolence [Unknown]
  - Sunburn [Unknown]
  - Eczema [Unknown]
  - Pruritus [Unknown]
  - Erythema [Unknown]
